FAERS Safety Report 6742298-0 (Version None)
Quarter: 2010Q2

REPORT INFORMATION
  Report Type: 
  Country: None (occurrence: None)
  Receive Date: 20100526
  Receipt Date: 20100518
  Transmission Date: 20101027
  Serious: Yes (Other)
  Sender: FDA-Public Use
  Company Number: CHPA2010DK08579

PATIENT
  Sex: Female

DRUGS (2)
  1. NICOTINELL TTS (NCH) [Suspect]
     Indication: SMOKING CESSATION THERAPY
     Dosage: 14 MG, QD
     Dates: start: 20100429, end: 20100513
  2. CORODIL COMP [Concomitant]
     Indication: BLOOD PRESSURE
     Dosage: 20 MG/12.5 MG, UNK
     Route: 065

REACTIONS (3)
  - ALLERGIC RESPIRATORY SYMPTOM [None]
  - ASTHMA [None]
  - RASH [None]
